FAERS Safety Report 23760144 (Version 1)
Quarter: 2024Q2

REPORT INFORMATION
  Report Type: Spontaneous
  Country: CO (occurrence: CO)
  Receive Date: 20240419
  Receipt Date: 20240419
  Transmission Date: 20240716
  Serious: Yes (Hospitalization, Other)
  Sender: FDA-Public Use
  Company Number: CO-002147023-NVSC2019CO022097

PATIENT
  Age: 60 Year
  Sex: Female
  Weight: 79 kg

DRUGS (3)
  1. ATORVASTATIN [Suspect]
     Active Substance: ATORVASTATIN
     Indication: Product used for unknown indication
     Dosage: UNK
     Route: 048
  2. FEMARA [Suspect]
     Active Substance: LETROZOLE
     Indication: Breast cancer
     Dosage: 2.5 MG, QD
     Route: 048
     Dates: start: 20190528
  3. KISQALI [Suspect]
     Active Substance: RIBOCICLIB
     Indication: Breast cancer metastatic
     Dosage: 600 MG, QD (ONCE DAILY)
     Route: 048
     Dates: start: 20190528

REACTIONS (17)
  - Thrombosis [Recovered/Resolved]
  - General physical health deterioration [Unknown]
  - Gait disturbance [Unknown]
  - Mobility decreased [Not Recovered/Not Resolved]
  - Muscle atrophy [Unknown]
  - Metastases to peripheral nervous system [Unknown]
  - Pain in extremity [Unknown]
  - Influenza [Unknown]
  - Oropharyngeal pain [Unknown]
  - Headache [Unknown]
  - Peripheral swelling [Not Recovered/Not Resolved]
  - Erythema [Unknown]
  - Lacrimation increased [Unknown]
  - Hypertension [Unknown]
  - Weight increased [Unknown]
  - Weight decreased [Unknown]
  - Nerve injury [Unknown]

NARRATIVE: CASE EVENT DATE: 20190911
